FAERS Safety Report 7161952-2 (Version None)
Quarter: 2010Q4

REPORT INFORMATION
  Report Type: 
  Country: None (occurrence: None)
  Receive Date: 20101215
  Receipt Date: 20100726
  Transmission Date: 20110411
  Serious: Yes (Other)
  Sender: FDA-Public Use
  Company Number: IE-PFIZER INC-2010055205

PATIENT
  Sex: Male

DRUGS (4)
  1. LYRICA [Suspect]
     Indication: PARAESTHESIA
     Dosage: 150 MG, 2X/DAY
  2. LYRICA [Suspect]
     Indication: MYOFASCIAL PAIN SYNDROME
  3. LYRICA [Suspect]
     Indication: BACK PAIN
  4. DICLOFENAC SODIUM [Concomitant]
     Dosage: UNK

REACTIONS (1)
  - WITHDRAWAL SYNDROME [None]
